FAERS Safety Report 7760531-3 (Version None)
Quarter: 2011Q3

REPORT INFORMATION
  Report Type: 
  Country: None (occurrence: None)
  Receive Date: 20110919
  Receipt Date: 20110912
  Transmission Date: 20111222
  Serious: Yes (Life-Threatening, Hospitalization, Other)
  Sender: FDA-Public Use
  Company Number: US-ELI_LILLY_AND_COMPANY-US201109003987

PATIENT
  Sex: Male

DRUGS (17)
  1. GLUCOPHAGE [Concomitant]
  2. AVODART [Concomitant]
  3. EFFIENT [Suspect]
  4. NEURONTIN [Concomitant]
  5. ADVAIR DISKUS 100/50 [Concomitant]
     Dosage: UNK
     Dates: end: 20101112
  6. AZITHROMYCIN [Concomitant]
     Dosage: UNK
     Dates: start: 20101220
  7. LISINOPRIL AND HYDROCHLOROTHIAZIDE [Concomitant]
  8. ATENOLOL [Concomitant]
  9. VANTIN [Concomitant]
     Dosage: UNK
     Dates: start: 20110104, end: 20110110
  10. ASPIRIN [Concomitant]
  11. ADVAIR DISKUS 100/50 [Concomitant]
     Dosage: UNK
     Dates: start: 20101214
  12. VENTOLIN                                /SCH/ [Concomitant]
     Dosage: UNK
     Dates: start: 20110103
  13. MOTRIN [Concomitant]
     Dosage: UNK
     Dates: start: 20100507
  14. IMDUR [Concomitant]
  15. CRESTOR [Concomitant]
  16. ACTOS [Concomitant]
  17. SYSTANE [Concomitant]
     Dosage: UNK
     Dates: start: 20100823

REACTIONS (3)
  - SMALL CELL LUNG CANCER METASTATIC [None]
  - LOSS OF CONSCIOUSNESS [None]
  - ANGINA UNSTABLE [None]
